FAERS Safety Report 7037377-7 (Version None)
Quarter: 2010Q4

REPORT INFORMATION
  Report Type: 
  Country: None (occurrence: None)
  Receive Date: 20101011
  Receipt Date: 20100930
  Transmission Date: 20110411
  Serious: Yes (Other)
  Sender: FDA-Public Use
  Company Number: US-BAYER-201021146BCC

PATIENT
  Age: 21 Year
  Sex: Female
  Weight: 56 kg

DRUGS (3)
  1. MIDOL EXTENDED RELIEF [Suspect]
     Indication: PRODUCT USED FOR UNKNOWN INDICATION
     Dosage: TOTAL DAILY DOSE: 2 DF  UNIT DOSE: 1 DF
     Route: 048
     Dates: start: 20100801, end: 20100801
  2. MIDOL EXTENDED RELIEF [Suspect]
     Dosage: TOTAL DAILY DOSE: 1 DF  UNIT DOSE: 1 DF
     Route: 048
     Dates: start: 20100926
  3. ADVIL [Concomitant]
     Dosage: AS USED: 1 DF  UNIT DOSE: 1 DF
     Route: 065
     Dates: start: 20100926

REACTIONS (9)
  - BLOOD PRESSURE DECREASED [None]
  - HYPERSENSITIVITY [None]
  - LOSS OF CONSCIOUSNESS [None]
  - NAUSEA [None]
  - PRURITUS [None]
  - PRURITUS ALLERGIC [None]
  - PRURITUS GENERALISED [None]
  - SWELLING FACE [None]
  - SWOLLEN TONGUE [None]
